FAERS Safety Report 8146746-3 (Version None)
Quarter: 2012Q1

REPORT INFORMATION
  Report Type: 
  Country: None (occurrence: None)
  Receive Date: 20120217
  Receipt Date: 20111006
  Transmission Date: 20120608
  Serious: No
  Sender: FDA-Public Use
  Company Number: US-ABBOTT-11P-163-0861794-00

PATIENT
  Sex: Female
  Weight: 88.53 kg

DRUGS (3)
  1. SIMCOR [Suspect]
     Indication: BLOOD CHOLESTEROL INCREASED
     Dosage: 1000MG /20 MG
     Dates: start: 20100101
  2. SIMCOR [Suspect]
     Dosage: 500MG/20MG
     Dates: start: 20110701
  3. HYDROCHLOROTHIAZIDE [Concomitant]
     Indication: PRODUCT USED FOR UNKNOWN INDICATION
     Dosage: EVERY MORNING

REACTIONS (3)
  - GENERALISED ERYTHEMA [None]
  - MYALGIA [None]
  - BURNING SENSATION [None]
